FAERS Safety Report 4364528-5 (Version None)
Quarter: 2004Q2

REPORT INFORMATION
  Report Type: 
  Country: None (occurrence: None)
  Receive Date: 20040513
  Receipt Date: 20031015
  Transmission Date: 20050107
  Serious: Yes (Hospitalization)
  Sender: FDA-Public Use
  Company Number: 200319028US

PATIENT
  Age: 53 Year
  Sex: Female

DRUGS (5)
  1. DESMOPRESSIN ACETATE [Suspect]
     Indication: VON WILLEBRAND'S DISEASE
     Dosage: IV
     Route: 042
  2. HYOSCYAMINE SULFATE (LEVSIN) [Concomitant]
  3. SYNTHROID [Concomitant]
  4. HORMONE REPLACEMENT THERAPY [Concomitant]
  5. NARCOTICS [Concomitant]

REACTIONS (6)
  - ABDOMINAL PAIN [None]
  - CEREBROVASCULAR ACCIDENT [None]
  - COGNITIVE DISORDER [None]
  - HEADACHE [None]
  - MEMORY IMPAIRMENT [None]
  - NAUSEA [None]
